FAERS Safety Report 16390266 (Version 1)
Quarter: 2019Q2

REPORT INFORMATION
  Report Type: Spontaneous
  Country: ES (occurrence: ES)
  Receive Date: 20190604
  Receipt Date: 20190604
  Transmission Date: 20190711
  Serious: Yes (Death, Life-Threatening, Other)
  Sender: FDA-Public Use
  Company Number: ES-BRISTOL-MYERS SQUIBB COMPANY-BMS-2019-053140

PATIENT
  Age: 70 Year
  Sex: Male

DRUGS (2)
  1. METFORMIN HYDROCHLORIDE. [Suspect]
     Active Substance: METFORMIN HYDROCHLORIDE
     Indication: TYPE 2 DIABETES MELLITUS
     Dosage: UNK
     Route: 065
  2. VOKANAMET [CANAGLIFLOZIN HEMIHYDRATE;METFORMIN HYDROCHLORIDE] [Concomitant]
     Indication: TYPE 2 DIABETES MELLITUS
     Dosage: FORM STRENGTH: 50/1000 MG
     Route: 065

REACTIONS (3)
  - Toxicity to various agents [Fatal]
  - Lactic acidosis [Fatal]
  - Renal failure [Fatal]
